FAERS Safety Report 6475571-4 (Version None)
Quarter: 2009Q4

REPORT INFORMATION
  Report Type: 
  Country: None (occurrence: None)
  Receive Date: 20091204
  Receipt Date: 20090102
  Transmission Date: 20100525
  Serious: No
  Sender: FDA-Public Use
  Company Number: US-AMGEN-KDL326578

PATIENT
  Sex: Female

DRUGS (3)
  1. ENBREL [Suspect]
     Indication: PSORIASIS
     Route: 058
     Dates: start: 20060705
  2. DESONIDE [Concomitant]
     Dates: start: 20080519
  3. TRIAMCINOLONE [Concomitant]
     Dates: start: 20080822

REACTIONS (1)
  - ABSCESS [None]
